FAERS Safety Report 15514959 (Version 3)
Quarter: 2018Q4

REPORT INFORMATION
  Report Type: Spontaneous
  Country: US (occurrence: US)
  Receive Date: 20181017
  Receipt Date: 20181105
  Transmission Date: 20190205
  Serious: Yes (Hospitalization)
  Sender: FDA-Public Use
  Company Number: US-SHIRE-US201839860

PATIENT
  Age: 18 Year
  Sex: Male

DRUGS (1)
  1. VPRIV [Suspect]
     Active Substance: VELAGLUCERASE ALFA
     Indication: GAUCHER^S DISEASE
     Route: 065

REACTIONS (4)
  - Mental disorder [Unknown]
  - Abnormal behaviour [Unknown]
  - Decreased appetite [Unknown]
  - Social fear [Unknown]
